FAERS Safety Report 16847311 (Version 1)
Quarter: 2019Q3

REPORT INFORMATION
  Report Type: Spontaneous
  Country: US (occurrence: US)
  Receive Date: 20190924
  Receipt Date: 20190924
  Transmission Date: 20191005
  Serious: No
  Sender: FDA-Public Use
  Company Number: PHEH2019US039281

PATIENT
  Sex: Female

DRUGS (1)
  1. BIMATOPROST SANDOZ [Suspect]
     Active Substance: BIMATOPROST
     Indication: PRODUCT USED FOR UNKNOWN INDICATION
     Dosage: UNK (1X3 ML)
     Route: 065

REACTIONS (2)
  - Blister [Unknown]
  - Ocular hyperaemia [Unknown]
